FAERS Safety Report 10949187 (Version 2)
Quarter: 2015Q1

REPORT INFORMATION
  Report Type: Spontaneous
  Country: AU (occurrence: None)
  Receive Date: 20150320
  Receipt Date: 20150331
  Transmission Date: 20150721
  Serious: Yes (Hospitalization, Other)
  Sender: FDA-Public Use
  Company Number: KAD201503-000565

PATIENT
  Age: 52 Year
  Sex: Male

DRUGS (5)
  1. ABT-450/RITONAVIR/ABT-267 (OMBITASVIR, PARITAPREVIR, RITONAVIR) [Suspect]
     Active Substance: OMBITASVIR\PARITAPREVIR\RITONAVIR
     Indication: HEPATITIS C
     Route: 048
     Dates: start: 20150227
  2. RIBAVIRIN 200 MG TABLETS [Suspect]
     Active Substance: RIBAVIRIN
     Indication: HEPATITIS C
     Dosage: DIVIDED DOSE: 1200 MG DAILY (200 MG), ORAL
     Route: 048
     Dates: start: 20150228
  3. PERINDOPRIL (PERINDOPRIL) (PERINDOPRIL) [Concomitant]
  4. ABT-333 (DASABUVIR) [Suspect]
     Active Substance: DASABUVIR
     Indication: HEPATITIS C
     Dosage: 250 MG TWICE DAILY (500 MG), ORAL
     Route: 048
     Dates: start: 20150228
  5. AMLODIPINE [Concomitant]
     Active Substance: AMLODIPINE BESYLATE

REACTIONS (7)
  - Musculoskeletal pain [None]
  - Pain [None]
  - Neck pain [None]
  - Chest pain [None]
  - Dyspnoea [None]
  - Electrocardiogram T wave inversion [None]
  - Facial pain [None]

NARRATIVE: CASE EVENT DATE: 20150306
